FAERS Safety Report 23196878 (Version 2)
Quarter: 2025Q4

REPORT INFORMATION
  Report Type: Report from Study
  Country: CA (occurrence: CA)
  Receive Date: 20231117
  Receipt Date: 20251126
  Transmission Date: 20260118
  Serious: Yes (Death, Other)
  Sender: SANDOZ
  Company Number: CA-002147023-NVSC2022CA239525

PATIENT
  Sex: Female

DRUGS (1)
  1. ERELZI [Suspect]
     Active Substance: ETANERCEPT-SZZS
     Indication: Rheumatoid arthritis
     Dosage: 50 MG, QW
     Route: 058
     Dates: start: 20210201

REACTIONS (7)
  - Death [Fatal]
  - Dementia [Unknown]
  - Oropharyngeal pain [Unknown]
  - Dysphonia [Unknown]
  - Weight decreased [Unknown]
  - Cognitive disorder [Unknown]
  - Mobility decreased [Unknown]
